FAERS Safety Report 7946992-5 (Version None)
Quarter: 2011Q4

REPORT INFORMATION
  Report Type: 
  Country: None (occurrence: None)
  Receive Date: 20111129
  Receipt Date: 20111125
  Transmission Date: 20120403
  Serious: Yes (Other)
  Sender: FDA-Public Use
  Company Number: CA-PFIZER INC-2011289343

PATIENT
  Age: 69 Year
  Sex: Male

DRUGS (3)
  1. RAMIPRIL [Concomitant]
     Dosage: UNK
  2. HYDROCHLOROTHIAZIDE [Concomitant]
     Dosage: UNK
  3. VARENICLINE TARTRATE [Suspect]
     Dosage: UNK
     Dates: start: 20111001

REACTIONS (1)
  - BLOOD PRESSURE INCREASED [None]
